FAERS Safety Report 4307885-8 (Version None)
Quarter: 2004Q1

REPORT INFORMATION
  Report Type: 
  Country: None (occurrence: None)
  Receive Date: 20040226
  Receipt Date: 20030205
  Transmission Date: 20041129
  Serious: Yes (Other)
  Sender: FDA-Public Use
  Company Number: 2002095652US

PATIENT
  Sex: Male

DRUGS (15)
  1. CELEBREX [Suspect]
     Dosage: UNK, ORAL
     Route: 048
  2. DELTASONE [Suspect]
     Dosage: UNK, ORAL
     Route: 048
  3. INSULIN [Suspect]
  4. IMURAN [Suspect]
  5. LASIX [Suspect]
  6. CYCLOSPORINE [Suspect]
  7. CLONIDINE [Suspect]
  8. NORVASC [Suspect]
  9. TOPROL-XL [Suspect]
  10. ZEBETA [Suspect]
  11. CYCLOBENZAPRINE HCL [Suspect]
  12. B COMPLEX (PYRIDOXINE HYROCHLORIDE, THIAMINE HYROCHLORIDE, RIBOFLAVIN, [Suspect]
  13. VIOXX [Suspect]
  14. LIPITOR [Suspect]
  15. CLONAZEPAM [Suspect]

REACTIONS (7)
  - ARTHRALGIA [None]
  - DRUG INTERACTION [None]
  - MYALGIA [None]
  - RASH [None]
  - RENAL FAILURE [None]
  - SKIN DISORDER [None]
  - SKIN FISSURES [None]
